FAERS Safety Report 16075454 (Version 4)
Quarter: 2020Q1

REPORT INFORMATION
  Report Type: Spontaneous
  Country: CA (occurrence: CA)
  Receive Date: 20190315
  Receipt Date: 20200217
  Transmission Date: 20200409
  Serious: Yes (Hospitalization, Other)
  Sender: FDA-Public Use
  Company Number: CA-AUROBINDO-AUR-APL-2019-012861

PATIENT
  Age: 65 Year
  Sex: Female

DRUGS (30)
  1. METFORMIN [Suspect]
     Active Substance: METFORMIN HYDROCHLORIDE
     Indication: PRODUCT USED FOR UNKNOWN INDICATION
     Dosage: 1000 MILLIGRAM, TWO TIMES A DAY
     Route: 065
  2. DILTIAZEM. [Suspect]
     Active Substance: DILTIAZEM
     Indication: PRODUCT USED FOR UNKNOWN INDICATION
     Dosage: 1 DOSAGE FORM, ONCE A DAY
     Route: 048
  3. OMALIZUMAB. [Suspect]
     Active Substance: OMALIZUMAB
     Dosage: UNK
     Route: 058
  4. PREDNISONE. [Suspect]
     Active Substance: PREDNISONE
     Indication: ASTHMA
     Dosage: 4 DOSAGE FORM, ONCE A DAY
     Route: 048
  5. FORMOTEROL [Concomitant]
     Active Substance: FORMOTEROL
     Indication: PRODUCT USED FOR UNKNOWN INDICATION
     Dosage: UNK
     Route: 065
  6. ZENHALE [Concomitant]
     Active Substance: FORMOTEROL FUMARATE\MOMETASONE FUROATE
     Indication: ASTHMA
     Dosage: 2 DOSAGE FORM, FOUR TIMES/DAY, (2 DOSAGE FORM, 4 EVERY 1 DAY)
  7. OMALIZUMAB. [Suspect]
     Active Substance: OMALIZUMAB
     Dosage: 225 MILLIGRAM, 1 EVERY 2 WEEKS
     Route: 058
  8. OMALIZUMAB. [Suspect]
     Active Substance: OMALIZUMAB
     Dosage: 300 MILLIGRAM
     Route: 058
  9. OMALIZUMAB. [Suspect]
     Active Substance: OMALIZUMAB
     Indication: ASTHMA
     Dosage: 225 MILLIGRAM, 2 EVERY 1 WEEK
     Route: 058
  10. TUDORZA GENUAIR [Concomitant]
     Active Substance: ACLIDINIUM BROMIDE
     Indication: ASTHMA
     Dosage: 2 DOSAGE FORM, TWO TIMES A DAY
  11. CLONAZEPAM. [Suspect]
     Active Substance: CLONAZEPAM
     Indication: PRODUCT USED FOR UNKNOWN INDICATION
     Dosage: 1 DOSAGE FORM, 3 TIMES A DAY
     Route: 065
  12. MOMETASONE FUROATE. [Suspect]
     Active Substance: MOMETASONE FUROATE
     Indication: PRODUCT USED FOR UNKNOWN INDICATION
     Dosage: UNK
     Route: 065
  13. OMALIZUMAB. [Suspect]
     Active Substance: OMALIZUMAB
     Dosage: 225 MILLIGRAM, 1 EVERY 2 WEEKS
     Route: 058
  14. OMALIZUMAB. [Suspect]
     Active Substance: OMALIZUMAB
     Dosage: UNK
     Route: 058
  15. ACLIDINIUM BROMIDE. [Concomitant]
     Active Substance: ACLIDINIUM BROMIDE
     Indication: ASTHMA
     Dosage: 2 DOSAGE FORM, TWO TIMES A DAY
  16. ALENDRONIC ACID TABLETS [Suspect]
     Active Substance: ALENDRONIC ACID
     Indication: PRODUCT USED FOR UNKNOWN INDICATION
     Dosage: 35 MILLIGRAM
     Route: 048
  17. OMALIZUMAB. [Suspect]
     Active Substance: OMALIZUMAB
     Indication: ASTHMA
     Dosage: UNK
     Route: 058
  18. OMALIZUMAB. [Suspect]
     Active Substance: OMALIZUMAB
     Dosage: 225 MILLIGRAM, 1 EVERY 2 WEEKS
     Route: 058
  19. OMALIZUMAB. [Suspect]
     Active Substance: OMALIZUMAB
     Dosage: UNK
     Route: 058
  20. OMALIZUMAB. [Suspect]
     Active Substance: OMALIZUMAB
     Dosage: 225 MILLIGRAM, 2 EVERY 1 WEEKS
     Route: 058
  21. FUROSEMIDE. [Concomitant]
     Active Substance: FUROSEMIDE
     Indication: PRODUCT USED FOR UNKNOWN INDICATION
     Dosage: UNK
     Route: 065
  22. LASIX [Concomitant]
     Active Substance: FUROSEMIDE
     Indication: PRODUCT USED FOR UNKNOWN INDICATION
     Dosage: 1 DOSAGE FORM, ONCE A DAY
     Route: 048
  23. OMALIZUMAB. [Suspect]
     Active Substance: OMALIZUMAB
     Dosage: 225 MILLIGRAM, 1 EVERY 2 WEEKS
     Route: 058
  24. VENTOLIN [Concomitant]
     Active Substance: ALBUTEROL SULFATE
     Indication: ASTHMA
     Dosage: 4 DOSAGE FORM
  25. ATORVASTATIN TABLETS [Suspect]
     Active Substance: ATORVASTATIN
     Indication: PRODUCT USED FOR UNKNOWN INDICATION
     Dosage: 1 DOSAGE FORM, ONCE A DAY
     Route: 065
  26. OMALIZUMAB. [Suspect]
     Active Substance: OMALIZUMAB
     Dosage: 225 MILLIGRAM, 1 EVERY 2 WEEKS
     Route: 058
  27. SALBUTAMOL [Concomitant]
     Active Substance: ALBUTEROL
     Indication: PRODUCT USED FOR UNKNOWN INDICATION
     Dosage: UNK
     Route: 065
  28. ZENHALE [Concomitant]
     Active Substance: FORMOTEROL FUMARATE\MOMETASONE FUROATE
     Indication: ASTHMA
     Dosage: 2 DOSAGE FORM, 4EVERY 1 DAY
  29. OMALIZUMAB. [Suspect]
     Active Substance: OMALIZUMAB
     Dosage: 225 MILLIGRAM, 1 EVERY 2 WEEKS
     Route: 058
  30. OMALIZUMAB. [Suspect]
     Active Substance: OMALIZUMAB
     Dosage: 225 MILLIGRAM, 1 EVERY 2 WEEKS
     Route: 058

REACTIONS (31)
  - Pneumonia [Recovering/Resolving]
  - Pyrexia [Recovering/Resolving]
  - Dyspnoea [Recovering/Resolving]
  - Pain [Recovering/Resolving]
  - Cardiac failure [Recovering/Resolving]
  - Blood iron increased [Recovering/Resolving]
  - Blood iron decreased [Recovering/Resolving]
  - Oedema [Recovering/Resolving]
  - Bronchitis [Recovering/Resolving]
  - Muscular weakness [Recovering/Resolving]
  - Blood pressure increased [Not Recovered/Not Resolved]
  - Body temperature increased [Recovering/Resolving]
  - Chills [Recovering/Resolving]
  - Myopathy [Recovering/Resolving]
  - Abdominal distension [Recovering/Resolving]
  - Abdominal pain [Recovering/Resolving]
  - Drug dependence [Recovering/Resolving]
  - Blood pressure systolic increased [Recovering/Resolving]
  - Pain in extremity [Not Recovered/Not Resolved]
  - Haemoglobin decreased [Recovering/Resolving]
  - Obstructive airways disorder [Recovering/Resolving]
  - Migraine [Not Recovered/Not Resolved]
  - Peripheral swelling [Recovering/Resolving]
  - Diarrhoea [Recovering/Resolving]
  - Feeling cold [Recovering/Resolving]
  - Bronchiectasis [Recovering/Resolving]
  - Lower respiratory tract infection [Recovering/Resolving]
  - Cough [Recovering/Resolving]
  - Heart rate increased [Recovering/Resolving]
  - Arthralgia [Not Recovered/Not Resolved]
  - Back pain [Not Recovered/Not Resolved]
